FAERS Safety Report 20017436 (Version 1)
Quarter: 2021Q4

REPORT INFORMATION
  Report Type: Spontaneous
  Country: NL (occurrence: NL)
  Receive Date: 20211030
  Receipt Date: 20211030
  Transmission Date: 20220304
  Serious: Yes (Other)
  Sender: FDA-Public Use
  Company Number: None

PATIENT
  Age: 69 Year
  Sex: Female
  Weight: 79 kg

DRUGS (8)
  1. BUPRENORPHINE [Suspect]
     Active Substance: BUPRENORPHINE
     Indication: Back pain
     Dosage: PLASTER 5UG/HOUR /1 PATCH FOR 7 DAYS,1 DF
     Dates: start: 20210819, end: 20210821
  2. CANDESARTAN CILEXETIL [Concomitant]
     Active Substance: CANDESARTAN CILEXETIL
     Dosage: THERAPY START DATE :ASKU, THERAPY END DATE: ASKU16 MG (MILLIGRAM)
  3. METOPROLOL/HYDROCHLOORTHIAZIDE / Brand name not specified [Concomitant]
     Dosage: 100/12,5 MG (MILLIGRAM),100/12.5MG,THERAPY START DATE :ASKU, THERAPY END DATE: ASKU
  4. GABAPENTINE/ Brand name not specified [Concomitant]
     Dosage: 300 MG (MILLIGRAM)THERAPY START DATE :ASKU, THERAPY END DATE: ASKU
  5. CLONIDINE / Brand name not specified [Concomitant]
     Dosage: THERAPY START DATE :ASKU, THERAPY END DATE: ASKU,0,025 MG (MILLIGRAM)
  6. MONTELUKAST / Brand name not specified [Concomitant]
     Dosage: THERAPY START DATE :ASKU, THERAPY END DATE: ASKU, 10 MG (MILLIGRAM)
  7. LEVOCARNITINE  / CARNITENE TABLET [Concomitant]
     Dosage: 330 MG (MILLIGRAM)THERAPY START DATE :ASKU, THERAPY END DATE: ASKU
  8. CLONAZEPAM  / RIVOTRIL [Concomitant]
     Dosage: 0,5 MG (MILLIGRAM),THERAPY START DATE :ASKU, THERAPY END DATE: ASKU

REACTIONS (3)
  - Suicidal ideation [Recovering/Resolving]
  - Myalgia [Recovering/Resolving]
  - Bone pain [Recovering/Resolving]

NARRATIVE: CASE EVENT DATE: 20210819
